FAERS Safety Report 4362285-X (Version None)
Quarter: 2004Q2

REPORT INFORMATION
  Report Type: 
  Country: None (occurrence: None)
  Receive Date: 20040517
  Receipt Date: 20040506
  Transmission Date: 20050107
  Serious: Yes (Hospitalization)
  Sender: FDA-Public Use
  Company Number: US-JNJFOC-20040402036

PATIENT
  Age: 42 Year
  Sex: Male

DRUGS (1)
  1. DURAGESIC [Suspect]
     Indication: PAIN
     Dosage: 75 UG/HR, 1 IN 72 HOUR, TRANSDERMAL
     Route: 062
     Dates: start: 20040301, end: 20040415

REACTIONS (4)
  - APPLICATION SITE DERMATITIS [None]
  - DRUG EFFECT DECREASED [None]
  - MEDICATION ERROR [None]
  - POSTOPERATIVE INFECTION [None]
